FAERS Safety Report 8128281-1 (Version None)
Quarter: 2012Q1

REPORT INFORMATION
  Report Type: 
  Country: None (occurrence: None)
  Receive Date: 20120210
  Receipt Date: 20120209
  Transmission Date: 20120608
  Serious: Yes (Death)
  Sender: FDA-Public Use
  Company Number: US-EISAI INC-E2020-10321-SPO-US

PATIENT
  Age: 84 Year
  Sex: Female

DRUGS (2)
  1. ARICEPT [Suspect]
     Dosage: UNKNOWN
     Route: 048
  2. ARICEPT [Suspect]
     Dosage: DOSE INCREASED
     Route: 048

REACTIONS (1)
  - ROAD TRAFFIC ACCIDENT [None]
